FAERS Safety Report 5114508-7 (Version None)
Quarter: 2006Q3

REPORT INFORMATION
  Report Type: 
  Country: None (occurrence: None)
  Receive Date: 20060926
  Receipt Date: 20060914
  Transmission Date: 20061208
  Serious: Yes (Hospitalization)
  Sender: FDA-Public Use
  Company Number: FR-JNJFOC-20060802776

PATIENT
  Sex: Male
  Weight: 92 kg

DRUGS (5)
  1. RISPERDAL CONSTA [Suspect]
     Route: 030
  2. RISPERDAL CONSTA [Suspect]
     Indication: SCHIZOPHRENIA
     Route: 030
  3. TERCIAN [Suspect]
     Indication: SCHIZOPHRENIA
     Route: 048
  4. SERESTA [Concomitant]
     Indication: SCHIZOPHRENIA
  5. IMOVANE [Concomitant]
     Indication: SCHIZOPHRENIA

REACTIONS (2)
  - DELUSION [None]
  - TRANSAMINASES INCREASED [None]
